FAERS Safety Report 6204685-9 (Version None)
Quarter: 2009Q2

REPORT INFORMATION
  Report Type: 
  Country: None (occurrence: None)
  Receive Date: 20090527
  Receipt Date: 20090519
  Transmission Date: 20091009
  Serious: Yes (Other)
  Sender: FDA-Public Use
  Company Number: PHHY2009BR19659

PATIENT
  Sex: Female

DRUGS (1)
  1. RITALIN [Suspect]
     Dosage: 30 DF, ONCE/SINGLE
     Route: 048
     Dates: start: 20090518

REACTIONS (3)
  - HEADACHE [None]
  - OVERDOSE [None]
  - PARAESTHESIA [None]
